APPROVED DRUG PRODUCT: STENDRA
Active Ingredient: AVANAFIL
Strength: 200MG
Dosage Form/Route: TABLET;ORAL
Application: N202276 | Product #003 | TE Code: AB
Applicant: VIVUS LLC
Approved: Apr 27, 2012 | RLD: Yes | RS: Yes | Type: RX